FAERS Safety Report 13085183 (Version 2)
Quarter: 2018Q2

REPORT INFORMATION
  Report Type: Spontaneous
  Country: FR (occurrence: FR)
  Receive Date: 20170104
  Receipt Date: 20180604
  Transmission Date: 20180711
  Serious: Yes (Hospitalization, Other)
  Sender: FDA-Public Use
  Company Number: FR-PFIZER INC-2016603862

PATIENT
  Age: 61 Year
  Sex: Male
  Weight: 71 kg

DRUGS (1)
  1. OXALIPLATIN. [Suspect]
     Active Substance: OXALIPLATIN
     Indication: OESOPHAGEAL CARCINOMA
     Dosage: 85 MG/M2, CYCLIC
     Route: 042
     Dates: start: 20161209, end: 20161209

REACTIONS (5)
  - Dizziness [Recovered/Resolved]
  - Hyperhidrosis [Recovered/Resolved]
  - Hypotension [Recovered/Resolved]
  - Anaphylactoid reaction [Recovered/Resolved]
  - Venous oxygen saturation decreased [Recovered/Resolved]

NARRATIVE: CASE EVENT DATE: 20161209
